FAERS Safety Report 18272403 (Version 2)
Quarter: 2020Q3

REPORT INFORMATION
  Report Type: Spontaneous
  Country: AT (occurrence: AT)
  Receive Date: 20200916
  Receipt Date: 20200922
  Transmission Date: 20201103
  Serious: Yes (Hospitalization, Other)
  Sender: FDA-Public Use
  Company Number: AT-MYLANLABS-2020M1078056

PATIENT
  Age: 78 Year
  Sex: Male

DRUGS (9)
  1. PACLITAXEL. [Suspect]
     Active Substance: PACLITAXEL
     Indication: PANCREATIC CARCINOMA
     Dosage: 100 PERCENT
     Route: 065
  2. PACLITAXEL. [Suspect]
     Active Substance: PACLITAXEL
     Dosage: UNK, 80 PERCENT
     Route: 065
  3. GEMCITABINE. [Suspect]
     Active Substance: GEMCITABINE
     Indication: PANCREATIC CARCINOMA STAGE III
     Dosage: UNK,REDUCED TO 80%
     Route: 065
     Dates: start: 2017
  4. LEUCOVORIN                         /00566701/ [Suspect]
     Active Substance: LEUCOVORIN
     Indication: PANCREATIC CARCINOMA STAGE III
     Dosage: UNK
     Dates: start: 201708
  5. FLUOROURACIL. [Suspect]
     Active Substance: FLUOROURACIL
     Indication: PANCREATIC CARCINOMA STAGE III
     Dosage: UNK
     Dates: start: 201708
  6. PACLITAXEL. [Suspect]
     Active Substance: PACLITAXEL
     Indication: PANCREATIC CARCINOMA STAGE III
     Dosage: UNK, REDUCED TO 80%
     Route: 065
     Dates: start: 2017
  7. IRINOTECAN [Suspect]
     Active Substance: IRINOTECAN
     Indication: PANCREATIC CARCINOMA STAGE III
     Dosage: UNK
     Dates: start: 201708
  8. GEMCITABINE. [Suspect]
     Active Substance: GEMCITABINE
     Indication: PANCREATIC CARCINOMA
     Dosage: UNK, 100 PERCENT
     Route: 065
  9. GEMCITABINE. [Suspect]
     Active Substance: GEMCITABINE
     Dosage: UNK, 80 PERCENT
     Route: 065

REACTIONS (11)
  - Oesophageal candidiasis [Unknown]
  - Interstitial lung disease [Unknown]
  - Lung infiltration [Unknown]
  - Urinary tract infection [Unknown]
  - Pneumonia aspiration [Recovered/Resolved]
  - Influenza [Unknown]
  - Acute kidney injury [Recovered/Resolved]
  - Polyneuropathy [Unknown]
  - Candida infection [Recovered/Resolved]
  - Product use in unapproved indication [Unknown]
  - Urosepsis [Recovered/Resolved]

NARRATIVE: CASE EVENT DATE: 2017
